FAERS Safety Report 9337100 (Version 4)
Quarter: 2014Q2

REPORT INFORMATION
  Report Type: Report from Study
  Country: NL (occurrence: NL)
  Receive Date: 20130607
  Receipt Date: 20140430
  Transmission Date: 20141212
  Serious: Yes (Hospitalization)
  Sender: FDA-Public Use
  Company Number: PHHO2013NL006726

PATIENT
  Age: 56 Year
  Sex: Male
  Weight: 88 kg

DRUGS (10)
  1. LDK378 [Suspect]
     Indication: NON-SMALL CELL LUNG CANCER
     Dosage: 750 MG, QD
     Route: 048
     Dates: start: 20130114, end: 20130211
  2. LDK378 [Suspect]
     Dosage: 600 MG, QD
     Route: 048
     Dates: start: 20130304, end: 20130401
  3. LDK378 [Suspect]
     Dosage: 450 MG, QD
     Route: 048
     Dates: start: 20130412, end: 20130515
  4. ONDANSETRON [Suspect]
     Indication: VOMITING
     Dosage: PRN
  5. ZANTAC [Suspect]
     Indication: PROPHYLAXIS
     Dosage: 300 MG, QD
     Route: 048
     Dates: end: 20130516
  6. HYDROCORTISON                           /CZE/ [Suspect]
  7. DESMOPRESSIN [Concomitant]
     Dosage: 10 MG, BID
     Route: 048
  8. OMEPRAZOLE [Concomitant]
     Indication: VOMITING
     Dosage: UNK
     Dates: start: 20130519
  9. METOCLOPRAMIDE [Concomitant]
     Indication: VOMITING
     Dosage: PRN
     Dates: start: 20130523
  10. ASASANTIN [Concomitant]
     Indication: ANTICOAGULANT THERAPY
     Dosage: 1 DF (200/25), BID
     Route: 048

REACTIONS (1)
  - Pancreatitis [Recovered/Resolved]
